FAERS Safety Report 6820067-0 (Version None)
Quarter: 2010Q3

REPORT INFORMATION
  Report Type: 
  Country: None (occurrence: None)
  Receive Date: 20100707
  Receipt Date: 20100628
  Transmission Date: 20110219
  Serious: Yes (Hospitalization)
  Sender: FDA-Public Use
  Company Number: B0660924A

PATIENT
  Sex: Female
  Weight: 70 kg

DRUGS (5)
  1. LAPATINIB [Suspect]
     Indication: BREAST CANCER
     Dosage: 1500MG PER DAY
     Route: 048
     Dates: start: 20090529, end: 20100521
  2. CEFUROXIME [Suspect]
     Indication: PROPHYLAXIS
     Route: 042
     Dates: start: 20100518, end: 20100521
  3. AMOXICILLIN AND CLAVULANATE POTASSIUM [Concomitant]
     Indication: BODY TEMPERATURE INCREASED
     Route: 042
     Dates: start: 20100521, end: 20100526
  4. METRONIDAZOLE [Concomitant]
     Indication: COLITIS
     Route: 048
     Dates: start: 20100526, end: 20100527
  5. CIPRO [Concomitant]
     Indication: COLITIS
     Route: 042
     Dates: start: 20100526, end: 20100527

REACTIONS (3)
  - ABDOMINAL PAIN UPPER [None]
  - COLITIS [None]
  - DIARRHOEA [None]
